FAERS Safety Report 18904765 (Version 2)
Quarter: 2023Q2

REPORT INFORMATION
  Report Type: Spontaneous
  Country: CA (occurrence: CA)
  Receive Date: 20210217
  Receipt Date: 20230427
  Transmission Date: 20230722
  Serious: Yes (Congenital Anomaly)
  Sender: FDA-Public Use
  Company Number: CA-PFIZER INC-2021130411

PATIENT
  Age: 5 Month
  Sex: Male

DRUGS (5)
  1. PRISTIQ EXTENDED-RELEASE [Suspect]
     Active Substance: DESVENLAFAXINE SUCCINATE
     Indication: Depression
     Dosage: 150 MG, 1X/DAY
     Route: 048
  2. CANNABIS SATIVA FLOWERING TOP [Suspect]
     Active Substance: CANNABIS SATIVA FLOWERING TOP
     Indication: Depression
     Dosage: UNK, 2X/DAY
     Route: 045
  3. IRON DEXTRAN [Concomitant]
     Active Substance: IRON DEXTRAN
  4. PREGVIT [Concomitant]
  5. PROGESTERONE [Concomitant]
     Active Substance: PROGESTERONE

REACTIONS (8)
  - Product use issue [Not Recovered/Not Resolved]
  - Congenital anomaly [Not Recovered/Not Resolved]
  - Dysmorphism [Not Recovered/Not Resolved]
  - Dysphagia [Not Recovered/Not Resolved]
  - Congenital musculoskeletal disorder of limbs [Not Recovered/Not Resolved]
  - Congenital facial diplegia [Not Recovered/Not Resolved]
  - Poor feeding infant [Not Recovered/Not Resolved]
  - Bell^s palsy [Not Recovered/Not Resolved]
